FAERS Safety Report 7899036-8 (Version None)
Quarter: 2011Q4

REPORT INFORMATION
  Report Type: 
  Country: None (occurrence: None)
  Receive Date: 20111107
  Receipt Date: 20111103
  Transmission Date: 20120403
  Serious: Yes (Death, Life-Threatening, Other)
  Sender: FDA-Public Use
  Company Number: FR-ASTRAZENECA-2011SE62766

PATIENT
  Age: 28495 Day
  Sex: Male

DRUGS (11)
  1. NIMBEX [Suspect]
     Indication: ANAESTHESIA
     Route: 042
     Dates: start: 20100927, end: 20100927
  2. SUFENTA PRESERVATIVE FREE [Suspect]
     Indication: ANAESTHESIA
     Route: 042
     Dates: start: 20100927, end: 20100927
  3. SUFENTA PRESERVATIVE FREE [Suspect]
     Dosage: ONCE/SINGLE ADMINISTRATION
     Route: 042
     Dates: start: 20101116, end: 20101116
  4. NIMBEX [Suspect]
     Dosage: ONCE/SINGLE ADMINISTRATION
     Route: 042
     Dates: start: 20101116, end: 20101116
  5. EPHEDRINE AGUETTANT [Suspect]
     Indication: RESUSCITATION
     Route: 042
     Dates: start: 20100927, end: 20100927
  6. DIPRIVAN [Suspect]
     Dosage: ONCE/SINGLE ADMINISTRATION
     Route: 042
     Dates: start: 20101116, end: 20101116
  7. ETOMIDATE [Concomitant]
     Dates: start: 20101116, end: 20101116
  8. PHENYLEPHRINE HCL [Suspect]
     Indication: RESUSCITATION
     Route: 042
     Dates: start: 20100927, end: 20100927
  9. DIPRIVAN [Suspect]
     Indication: ANAESTHESIA
     Route: 042
     Dates: start: 20100927, end: 20100927
  10. ATROPINE [Concomitant]
     Dates: start: 20101116, end: 20101116
  11. ADRENALIN IN OIL INJ [Concomitant]
     Dates: start: 20101116, end: 20101116

REACTIONS (5)
  - ANAPHYLACTIC SHOCK [None]
  - VASOPLEGIA SYNDROME [None]
  - CARDIOGENIC SHOCK [None]
  - HYPOTENSION [None]
  - CARDIO-RESPIRATORY ARREST [None]
